FAERS Safety Report 9732032 (Version 1)
Quarter: 2013Q4

REPORT INFORMATION
  Report Type: Spontaneous
  Country: US (occurrence: None)
  Receive Date: 20131204
  Receipt Date: 20131204
  Transmission Date: 20140711
  Serious: Yes (Death)
  Sender: FDA-Public Use
  Company Number: None

PATIENT
  Age: 82 Year
  Sex: Female
  Weight: 85 kg

DRUGS (1)
  1. METHOTREXATE [Suspect]
     Indication: OSTEOARTHRITIS
     Dosage: 1 PILL, QD, ORAL
     Route: 048

REACTIONS (4)
  - Asthenia [None]
  - Pancytopenia [None]
  - Accidental overdose [None]
  - Renal failure [None]
